FAERS Safety Report 23661278 (Version 2)
Quarter: 2024Q1

REPORT INFORMATION
  Report Type: Spontaneous
  Country: BR (occurrence: BR)
  Receive Date: 20240322
  Receipt Date: 20240325
  Transmission Date: 20240409
  Serious: Yes (Other)
  Sender: FDA-Public Use
  Company Number: BR-BAXTER-2024BAX014779

PATIENT
  Age: 43 Year
  Sex: Female

DRUGS (2)
  1. IRON [Suspect]
     Active Substance: IRON
     Indication: Iron deficiency
     Dosage: 3 AMPOULES DILUTED IN 500 ML OF SALINE SOLUTION 0.9% (INFUSION RATE: 166 DROPS/MINUTE)
     Route: 042
     Dates: start: 20240305, end: 20240305
  2. SODIUM CHLORIDE [Suspect]
     Active Substance: SODIUM CHLORIDE
     Indication: Medication dilution
     Dosage: 500 ML OF 0.9 % SALINE SOLUTION USED TO DILUTE 3 AMPOULES OF SUCROFER (INFUSION RATE: 166 DROPS/MINU
     Route: 042
     Dates: start: 20240305, end: 20240305

REACTIONS (7)
  - Anaphylactic reaction [Recovered/Resolved]
  - Vomiting [Recovered/Resolved]
  - Pruritus [Recovered/Resolved]
  - Flushing [Recovered/Resolved]
  - Angioedema [Recovered/Resolved]
  - Erythema [Recovered/Resolved]
  - Exposure during pregnancy [Unknown]

NARRATIVE: CASE EVENT DATE: 20240305
